FAERS Safety Report 7602668-5 (Version None)
Quarter: 2011Q2

REPORT INFORMATION
  Report Type: 
  Country: None (occurrence: None)
  Receive Date: 20110630
  Receipt Date: 20110614
  Transmission Date: 20111010
  Serious: Yes (Hospitalization)
  Sender: FDA-Public Use
  Company Number: 2011SP022505

PATIENT
  Age: 59 Year
  Sex: Male
  Weight: 98.7481 kg

DRUGS (6)
  1. COLACE [Concomitant]
  2. BOCEPREVIR [Suspect]
     Indication: HEPATITIS C
     Dosage: 800 MG; TID; PO
     Route: 048
     Dates: start: 20090105, end: 20090714
  3. VICODIN [Concomitant]
  4. PEG-INTRON [Suspect]
     Indication: HEPATITIS C
     Dosage: ; QW; SC
     Route: 058
     Dates: start: 20081209, end: 20090714
  5. TERAZOSIN HCL [Concomitant]
  6. RIBAVIRIN [Suspect]
     Indication: HEPATITIS C
     Dosage: 600 MG; BID; PO
     Route: 048
     Dates: start: 20081209, end: 20090714

REACTIONS (2)
  - PLEURAL NEOPLASM [None]
  - PULMONARY FIBROSIS [None]
